FAERS Safety Report 19312061 (Version 1)
Quarter: 2021Q2

REPORT INFORMATION
  Report Type: Report from Study
  Country: GB (occurrence: GB)
  Receive Date: 20210527
  Receipt Date: 20210527
  Transmission Date: 20210717
  Serious: Yes (Other)
  Sender: FDA-Public Use
  Company Number: GB-ORION CORPORATION ORION PHARMA-21_00014499

PATIENT
  Age: 79 Year
  Sex: Female

DRUGS (4)
  1. HYRIMOZ [Suspect]
     Active Substance: ADALIMUMAB-ADAZ
     Indication: PSORIATIC ARTHROPATHY
     Dosage: EOW; STRENGTH: 40 MG/0.8 ML
     Route: 065
     Dates: start: 20190211
  2. HYRIMOZ [Suspect]
     Active Substance: ADALIMUMAB-ADAZ
     Route: 065
  3. COCODAMOL [Concomitant]
     Active Substance: ACETAMINOPHEN\CODEINE PHOSPHATE
     Dosage: IF NEEDED
     Route: 065
  4. METHOTREXATE (TRADE NAME UNKNOWN) [Suspect]
     Active Substance: METHOTREXATE
     Indication: PRODUCT USED FOR UNKNOWN INDICATION
     Route: 065

REACTIONS (7)
  - Dry skin [Unknown]
  - Dry mouth [Recovered/Resolved]
  - Sleep disorder [Unknown]
  - Psoriatic arthropathy [Unknown]
  - Pain in extremity [Unknown]
  - Rheumatic disorder [Unknown]
  - Oral pain [Recovered/Resolved]
